FAERS Safety Report 6583305-8 (Version None)
Quarter: 2010Q1

REPORT INFORMATION
  Report Type: 
  Country: None (occurrence: None)
  Receive Date: 20100216
  Receipt Date: 20100210
  Transmission Date: 20100710
  Serious: Yes (Hospitalization)
  Sender: FDA-Public Use
  Company Number: Z0003065A

PATIENT
  Sex: Female
  Weight: 56 kg

DRUGS (1)
  1. PAZOPANIB [Suspect]
     Indication: OVARIAN CANCER
     Dosage: 800MG PER DAY
     Route: 048
     Dates: start: 20100114

REACTIONS (3)
  - DIARRHOEA [None]
  - NASOPHARYNGITIS [None]
  - PALMAR-PLANTAR ERYTHRODYSAESTHESIA SYNDROME [None]
